FAERS Safety Report 16028543 (Version 5)
Quarter: 2022Q3

REPORT INFORMATION
  Report Type: Other
  Country: DE (occurrence: None)
  Receive Date: 20190304
  Receipt Date: 20220721
  Transmission Date: 20221027
  Serious: Yes (Hospitalization, Other)
  Sender: FDA-Public Use
  Company Number: DE-ROCHE-2271569

PATIENT
  Age: 45 Year
  Sex: Female

DRUGS (14)
  1. OCREVUS [Suspect]
     Active Substance: OCRELIZUMAB
     Indication: Secondary progressive multiple sclerosis
     Dosage: 600 MG
     Route: 042
     Dates: start: 20180730, end: 20210816
  2. OCREVUS [Suspect]
     Active Substance: OCRELIZUMAB
     Indication: Secondary progressive multiple sclerosis
     Route: 042
     Dates: start: 20190213
  3. OCREVUS [Suspect]
     Active Substance: OCRELIZUMAB
     Route: 042
     Dates: start: 20210113
  4. MODERNA COVID-19 VACCINE [Suspect]
     Active Substance: ELASOMERAN
     Indication: COVID-19 prophylaxis
     Route: 065
     Dates: start: 2021
  5. MODERNA COVID-19 VACCINE [Suspect]
     Active Substance: ELASOMERAN
     Dosage: AT NIGHT
     Route: 065
  6. MODERNA COVID-19 VACCINE [Suspect]
     Active Substance: ELASOMERAN
     Dosage: 4 DROPS AT NIGHT
     Route: 065
  7. CHOLECALCIFEROL [Concomitant]
     Active Substance: CHOLECALCIFEROL
  8. ESOMEPRAZOLE [Concomitant]
     Active Substance: ESOMEPRAZOLE
  9. FOSTER [Concomitant]
     Active Substance: BECLOMETHASONE\FORMOTEROL
     Dosage: 100/6, 1-0-0, 100 UG BECLOMETHASONE DIPROPIONATE AND 6 UG FORMOTEROL FUMARATE DIHYDRATE
  10. CYCLOSPORINE [Concomitant]
     Active Substance: CYCLOSPORINE
     Dosage: 1-0-1
  11. RIVOTRIL [Concomitant]
     Active Substance: CLONAZEPAM
  12. RIVOTRIL [Concomitant]
     Active Substance: CLONAZEPAM
     Dosage: 4 DROPS AT NIGHT
  13. GABAPENTIN [Concomitant]
     Active Substance: GABAPENTIN
  14. OXYBUTYNIN [Concomitant]
     Active Substance: OXYBUTYNIN

REACTIONS (19)
  - Uveitis [Recovered/Resolved]
  - Fall [Unknown]
  - Skeletal injury [Recovered/Resolved]
  - Ligament sprain [Recovered/Resolved]
  - Fatigue [Recovered/Resolved]
  - Osteitis [Recovered/Resolved]
  - Asthenia [Recovered/Resolved]
  - Pulpitis dental [Recovered/Resolved]
  - Muscular weakness [Not Recovered/Not Resolved]
  - Balance disorder [Not Recovered/Not Resolved]
  - Headache [Not Recovered/Not Resolved]
  - Trigeminal neuralgia [Recovered/Resolved]
  - Urinary tract infection [Recovered/Resolved]
  - White blood cells urine [Unknown]
  - Bladder disorder [Recovered/Resolved]
  - Urinary incontinence [Not Recovered/Not Resolved]
  - Off label use [Unknown]
  - Balance disorder [Not Recovered/Not Resolved]
  - Coronavirus infection [Not Recovered/Not Resolved]

NARRATIVE: CASE EVENT DATE: 20190101
